FAERS Safety Report 4461968-0 (Version None)
Quarter: 2004Q3

REPORT INFORMATION
  Report Type: 
  Country: None (occurrence: None)
  Receive Date: 20040923
  Receipt Date: 20040914
  Transmission Date: 20050211
  Serious: Yes (Other)
  Sender: FDA-Public Use
  Company Number: 2004214420JP

PATIENT
  Age: 84 Year
  Sex: Female
  Weight: 29 kg

DRUGS (3)
  1. DOXORUBICIN HYDROCHLORIDE [Suspect]
     Indication: LYMPHOMA
     Dosage: 33 MG, QD, IV
     Route: 042
     Dates: start: 20031218, end: 20031218
  2. ONCOVIN [Suspect]
     Indication: LYMPHOMA
     Dosage: 1 MG, QD, IV
     Route: 042
     Dates: start: 20031218, end: 20031218
  3. CYCLOPHOSPHAMIDE [Suspect]
     Indication: LYMPHOMA
     Dosage: 550 MG, QD, IV
     Route: 042
     Dates: start: 20031218, end: 20031218

REACTIONS (3)
  - ILEAL PERFORATION [None]
  - MALAISE [None]
  - TUMOUR NECROSIS [None]
